FAERS Safety Report 8946591 (Version 1)
Quarter: 2012Q4

REPORT INFORMATION
  Report Type: 
  Country: US (occurrence: US)
  Receive Date: 20121204
  Receipt Date: 20121204
  Transmission Date: 20130627
  Serious: Yes (Other)
  Sender: FDA-Public Use
  Company Number: US-B.I. PHARMACEUTICALS,INC./RIDGEFIELD-2012-BI-01863BP

PATIENT
  Sex: Female

DRUGS (3)
  1. SPIRIVA [Suspect]
     Indication: CHRONIC OBSTRUCTIVE PULMONARY DISEASE
     Dosage: 18 mcg
     Route: 055
     Dates: start: 201209
  2. SPIRIVA [Suspect]
     Route: 048
     Dates: start: 20121128, end: 20121128
  3. LYRICA [Concomitant]
     Indication: NEURALGIA
     Route: 048

REACTIONS (5)
  - Skin cancer [Unknown]
  - Malignant melanoma [Recovered/Resolved]
  - Somnolence [Not Recovered/Not Resolved]
  - Dry mouth [Not Recovered/Not Resolved]
  - Incorrect route of drug administration [Recovered/Resolved]
